FAERS Safety Report 15393414 (Version 1)
Quarter: 2018Q3

REPORT INFORMATION
  Report Type: Spontaneous
  Country: US (occurrence: US)
  Receive Date: 20180917
  Receipt Date: 20180917
  Transmission Date: 20181010
  Serious: No
  Sender: FDA-Public Use
  Company Number: US-LEADIANT BIOSCIENCES INC-2017STPI000745

PATIENT
  Age: 43 Year
  Sex: Female

DRUGS (6)
  1. MATULANE [Suspect]
     Active Substance: PROCARBAZINE HYDROCHLORIDE
     Indication: BRAIN NEOPLASM MALIGNANT
     Dosage: 100 MG QD FOR 14 DAYS OF EACH CYCLE
     Route: 048
     Dates: start: 20170604
  2. MULTIVITAMIN                       /00097801/ [Concomitant]
     Active Substance: VITAMINS
  3. DEXAMETHASON                       /00016001/ [Concomitant]
     Active Substance: DEXAMETHASONE
  4. ATORVASTATIN [Concomitant]
     Active Substance: ATORVASTATIN
  5. KEPPRA [Concomitant]
     Active Substance: LEVETIRACETAM
  6. PEPCID                             /00305201/ [Concomitant]
     Active Substance: ALUMINUM HYDROXIDE\MAGNESIUM CARBONATE

REACTIONS (2)
  - Pruritus [Unknown]
  - Rash generalised [Unknown]

NARRATIVE: CASE EVENT DATE: 201709
